FAERS Safety Report 5127024-3 (Version None)
Quarter: 2006Q4

REPORT INFORMATION
  Report Type: 
  Country: None (occurrence: None)
  Receive Date: 20061013
  Receipt Date: 20061008
  Transmission Date: 20070319
  Serious: Yes (Hospitalization)
  Sender: FDA-Public Use
  Company Number: AT-GLAXOSMITHKLINE-B0441773A

PATIENT
  Sex: Female

DRUGS (10)
  1. QUILONORM [Suspect]
     Indication: DRUG USE FOR UNKNOWN INDICATION
     Dates: start: 20060705, end: 20060708
  2. THYREX [Suspect]
     Dosage: .05MG PER DAY
     Dates: start: 20060705
  3. SOMNUBENE [Suspect]
     Dosage: 1MG PER DAY
     Dates: start: 20060705, end: 20060705
  4. AQUAPHORIL [Suspect]
     Dosage: 80MG PER DAY
     Dates: start: 20060705, end: 20060708
  5. LORAZEPAM [Suspect]
     Dosage: 1.25MG PER DAY
     Dates: start: 20060706, end: 20060706
  6. PSYCHOPAX [Suspect]
     Dates: start: 20060706, end: 20060708
  7. POTASSIUM CHLORIDE [Suspect]
     Dosage: 1200MG PER DAY
     Dates: start: 20060706, end: 20060707
  8. CONCOR [Suspect]
     Dosage: 2.5MG PER DAY
     Dates: start: 20060707, end: 20060708
  9. DOMINAL FORTE [Suspect]
     Dosage: 80MG PER DAY
     Dates: start: 20060707, end: 20060707
  10. POTASSIUM + MAGNESIUM [Suspect]
     Dosage: 250MG PER DAY
     Dates: start: 20060708, end: 20060708

REACTIONS (10)
  - AGGRESSION [None]
  - AGITATION [None]
  - BLOOD POTASSIUM DECREASED [None]
  - ENCEPHALOPATHY [None]
  - LEUKOCYTOSIS [None]
  - PAIN [None]
  - RESTLESSNESS [None]
  - SOMNOLENCE [None]
  - THERAPEUTIC AGENT TOXICITY [None]
  - URINARY TRACT INFECTION [None]
